FAERS Safety Report 10796956 (Version 1)
Quarter: 2015Q1

REPORT INFORMATION
  Report Type: Report from Study
  Country: US (occurrence: US)
  Receive Date: 20150216
  Receipt Date: 20150216
  Transmission Date: 20150721
  Serious: No
  Sender: FDA-Public Use
  Company Number: US-ABBVIE-14K-163-1211469-00

PATIENT
  Age: 35 Year
  Sex: Female

DRUGS (1)
  1. HUMIRA [Suspect]
     Active Substance: ADALIMUMAB
     Indication: RHEUMATOID ARTHRITIS
     Dates: start: 20140123

REACTIONS (6)
  - Constipation [Not Recovered/Not Resolved]
  - Psychomotor hyperactivity [Unknown]
  - Drug ineffective [Not Recovered/Not Resolved]
  - Rash [Unknown]
  - Dyspnoea [Unknown]
  - Lung infection [Unknown]

NARRATIVE: CASE EVENT DATE: 2014
